FAERS Safety Report 6965837-3 (Version None)
Quarter: 2010Q3

REPORT INFORMATION
  Report Type: 
  Country: None (occurrence: None)
  Receive Date: 20100903
  Receipt Date: 20100824
  Transmission Date: 20110219
  Serious: Yes (Other)
  Sender: FDA-Public Use
  Company Number: US-NOVOPROD-313845

PATIENT
  Age: 43 Year
  Sex: Female
  Weight: 124.26 kg

DRUGS (23)
  1. LEVEMIR [Suspect]
     Indication: DIABETES MELLITUS
     Dosage: 47 U, BID
     Route: 058
  2. LYRICA [Suspect]
     Indication: FIBROMYALGIA
     Dosage: 150 MG, TID
     Route: 048
     Dates: start: 20070101
  3. TEGRETOL [Suspect]
     Indication: MOOD SWINGS
     Dosage: 1200 MG, QD (400 MG AM 800 MG PM)
     Route: 048
  4. TEGRETOL [Suspect]
     Indication: PERSONALITY DISORDER
  5. PROVIGIL [Suspect]
     Indication: SLEEP APNOEA SYNDROME
     Dosage: 200 MG, 1.5 TABS QD
     Route: 048
  6. PROPRANOLOL [Suspect]
     Indication: BLOOD PRESSURE INCREASED
     Dosage: 20 MG, BID
     Route: 048
  7. SIMVASTATIN [Suspect]
     Indication: BLOOD CHOLESTEROL INCREASED
     Dosage: 40 MG, QD
     Route: 048
  8. MELOXICAM [Suspect]
     Indication: PAIN
     Dosage: 15 MG, BID
     Route: 048
  9. CETIRIZINE HCL [Suspect]
     Indication: HYPERSENSITIVITY
     Dosage: 10 MG, QD
     Route: 048
  10. LISINOPRIL [Suspect]
     Indication: BLOOD PRESSURE
     Dosage: 10 MG, QD
     Route: 048
  11. METHOCARBAMOL [Suspect]
     Indication: PAIN
     Dosage: 500 MG, BID
     Route: 048
  12. BACLOFEN [Suspect]
     Indication: RESTLESS LEGS SYNDROME
     Dosage: 20 MG, TID
     Route: 048
  13. METHADOSE [Suspect]
     Indication: PAIN
     Dosage: 10 MG, 5 TIMES A DAY
     Route: 048
  14. CYMBALTA [Suspect]
     Indication: DEPRESSION
     Dosage: 60 MG, BID
     Route: 048
  15. ASPIRIN [Suspect]
     Indication: CARDIAC DISORDER
     Dosage: 81 MG, QD
     Route: 048
  16. LEVOTHYROXINE [Suspect]
     Indication: THYROID DISORDER
     Dosage: 50 UG, QD
     Route: 048
  17. OMEPRAZOLE [Suspect]
     Indication: GASTROOESOPHAGEAL REFLUX DISEASE
     Dosage: 40 MG, QD
     Route: 048
  18. LIDODERM [Suspect]
     Indication: MYALGIA
     Dosage: 3 PATCHES, 12 HOURS ON, 12 HOURS OFF
     Route: 061
  19. FLUTICASONE PROPIONATE [Suspect]
     Indication: NASAL SEPTUM DEVIATION
     Dosage: UNK
     Route: 045
     Dates: start: 20100101
  20. MIRALAX [Suspect]
     Indication: CONSTIPATION
     Dosage: 17 GM, QD
     Route: 048
  21. MULTIVITAMIN                       /00097801/ [Suspect]
     Indication: PRODUCT USED FOR UNKNOWN INDICATION
     Route: 048
  22. FISH OIL [Suspect]
     Indication: PRODUCT USED FOR UNKNOWN INDICATION
     Dosage: UNK
  23. VITAMIN E                          /00110501/ [Suspect]
     Indication: PRODUCT USED FOR UNKNOWN INDICATION
     Dosage: UNK

REACTIONS (2)
  - CONVULSION [None]
  - FIBROMYALGIA [None]
